FAERS Safety Report 12013828 (Version 1)
Quarter: 2016Q1

REPORT INFORMATION
  Report Type: Spontaneous
  Country: JP (occurrence: JP)
  Receive Date: 20160205
  Receipt Date: 20160205
  Transmission Date: 20160526
  Serious: Yes (Other)
  Sender: FDA-Public Use
  Company Number: GXJP2016JP000483

PATIENT
  Age: 71 Year
  Sex: Female
  Weight: 44.5 kg

DRUGS (9)
  1. CLARITHROMYCIN. [Suspect]
     Active Substance: CLARITHROMYCIN
     Indication: ATYPICAL MYCOBACTERIAL INFECTION
     Dosage: 800 MG, UNK
     Route: 048
  2. RIFAMPICIN CAPSULES [Suspect]
     Active Substance: RIFAMPIN
     Dosage: 150 MG, UNK
     Route: 065
  3. CLARITHROMYCIN. [Suspect]
     Active Substance: CLARITHROMYCIN
     Dosage: 800 UNK, UNK
     Route: 065
  4. ESANBUTOL TABLETS [Suspect]
     Active Substance: ETHAMBUTOL HYDROCHLORIDE
     Dosage: 300 UNK, UNK
     Route: 065
  5. RIFAMPICIN CAPSULES [Suspect]
     Active Substance: RIFAMPIN
     Indication: ATYPICAL MYCOBACTERIAL INFECTION
     Dosage: 450 MG, UNK
     Route: 048
  6. ESANBUTOL TABLETS [Suspect]
     Active Substance: ETHAMBUTOL HYDROCHLORIDE
     Indication: ATYPICAL MYCOBACTERIAL INFECTION
     Dosage: 300 MG, UNK
     Route: 048
  7. RIFAMPICIN CAPSULES [Suspect]
     Active Substance: RIFAMPIN
     Dosage: 450 MG, UNK
     Route: 048
  8. MERCAZOLE [Concomitant]
     Active Substance: CARBIMAZOLE
     Indication: BASEDOW^S DISEASE
     Dosage: 10 MG, UNK
     Route: 048
  9. RIFAMPICIN CAPSULES [Suspect]
     Active Substance: RIFAMPIN
     Dosage: 300 MG, UNK
     Route: 048

REACTIONS (1)
  - Pancytopenia [Recovered/Resolved]
